FAERS Safety Report 6515543-4 (Version None)
Quarter: 2009Q4

REPORT INFORMATION
  Report Type: 
  Country: None (occurrence: None)
  Receive Date: 20091223
  Receipt Date: 20091214
  Transmission Date: 20100525
  Serious: Yes (Hospitalization)
  Sender: FDA-Public Use
  Company Number: JP-BRISTOL-MYERS SQUIBB COMPANY-14895163

PATIENT
  Age: 64 Year
  Sex: Female

DRUGS (2)
  1. CISPLATIN [Suspect]
     Indication: HEPATIC NEOPLASM MALIGNANT
  2. FLUOROURACIL [Suspect]
     Indication: HEPATIC NEOPLASM MALIGNANT

REACTIONS (1)
  - CHOLANGITIS SCLEROSING [None]
